FAERS Safety Report 9724005 (Version 1)
Quarter: 2013Q4

REPORT INFORMATION
  Report Type: Spontaneous
  Country: US (occurrence: US)
  Receive Date: 20131202
  Receipt Date: 20131202
  Transmission Date: 20140711
  Serious: No
  Sender: FDA-Public Use
  Company Number: US-AMGEN-USASP2013077833

PATIENT
  Age: 49 Year
  Sex: Female

DRUGS (2)
  1. ENBREL [Suspect]
     Indication: RHEUMATOID ARTHRITIS
     Dosage: 50 MG, QWK
     Route: 065
     Dates: start: 20131011
  2. METHOTREXATE [Concomitant]
     Dosage: UNK UNK, QWK, 6 TABS WEEKLY
     Dates: start: 201210

REACTIONS (3)
  - Drug effect incomplete [Not Recovered/Not Resolved]
  - Nodule [Recovered/Resolved]
  - Injection site pain [Not Recovered/Not Resolved]
